FAERS Safety Report 6394220-7 (Version None)
Quarter: 2009Q4

REPORT INFORMATION
  Report Type: 
  Country: None (occurrence: None)
  Receive Date: 20091008
  Receipt Date: 20090925
  Transmission Date: 20100525
  Serious: Yes (Other)
  Sender: FDA-Public Use
  Company Number: BE-GENENTECH-291428

PATIENT
  Age: 46 Year
  Sex: Female

DRUGS (4)
  1. TRASTUZUMAB [Suspect]
     Indication: BREAST CANCER
     Dosage: 2 MG/KG, UNK
     Route: 042
  2. CAELYX [Suspect]
     Indication: BREAST CANCER
     Dosage: 60 MG/M2, UNK
     Route: 042
  3. PACLITAXEL [Suspect]
     Indication: BREAST CANCER
     Dosage: 80 MG/M2, UNK
     Route: 042
  4. CYCLOPHOSPHAMIDE [Suspect]
     Indication: BREAST CANCER
     Dosage: 600 MG/M2, UNK
     Route: 042

REACTIONS (1)
  - OVERDOSE [None]
